FAERS Safety Report 5977684-X (Version None)
Quarter: 2008Q4

REPORT INFORMATION
  Report Type: 
  Country: None (occurrence: None)
  Receive Date: 20081201
  Receipt Date: 20081201
  Transmission Date: 20090506
  Serious: Yes (Life-Threatening)
  Sender: FDA-Public Use
  Company Number: None

PATIENT
  Age: 36 Year
  Sex: Female
  Weight: 74.8435 kg

DRUGS (1)
  1. LUNESTA [Suspect]
     Indication: INSOMNIA
     Dosage: 1 PILL AT 2:00 AM PER NIGHT AS NEEDE
     Dates: start: 20080720, end: 20080928

REACTIONS (6)
  - AMNESIA [None]
  - CONDITION AGGRAVATED [None]
  - FLASHBACK [None]
  - HALLUCINATION [None]
  - IMPAIRED DRIVING ABILITY [None]
  - IMPRISONMENT [None]
